FAERS Safety Report 5383298-5 (Version None)
Quarter: 2007Q3

REPORT INFORMATION
  Report Type: 
  Country: None (occurrence: None)
  Receive Date: 20070710
  Receipt Date: 20070622
  Transmission Date: 20080115
  Serious: Yes (Hospitalization)
  Sender: FDA-Public Use
  Company Number: DE-ASTRAZENECA-2007PK01256

PATIENT
  Age: 48 Year
  Sex: Female

DRUGS (7)
  1. SEROQUEL [Suspect]
     Dosage: 25 MG TO 1200 MG PER DAY
     Dates: start: 20060911
  2. LEPONEX [Suspect]
     Dosage: 25 MG TO 75 MG PER DAY
     Route: 048
     Dates: start: 20061005, end: 20061010
  3. BELOC ZOK [Concomitant]
     Route: 048
  4. LEVOTHYROXINE SODIUM [Concomitant]
     Route: 048
  5. RAMIPRIL [Concomitant]
     Route: 048
  6. PROMETHAZINE [Concomitant]
     Route: 048
  7. ESTRIOL [Concomitant]
     Route: 048

REACTIONS (1)
  - NEUTROPENIA [None]
